FAERS Safety Report 25943829 (Version 1)
Quarter: 2025Q4

REPORT INFORMATION
  Report Type: Spontaneous
  Country: EU (occurrence: EU)
  Receive Date: 20251021
  Receipt Date: 20251021
  Transmission Date: 20260118
  Serious: Yes (Life-Threatening, Hospitalization, Other)
  Sender: SANDOZ
  Company Number: EU-PFIZER INC-2017516936

PATIENT
  Age: 5 Year
  Sex: Male

DRUGS (47)
  1. AMBISOME [Suspect]
     Active Substance: AMPHOTERICIN B
     Indication: Antifungal treatment
     Dosage: 1 MG/KG, QD
     Route: 065
     Dates: start: 201503, end: 2015
  2. AMBISOME [Suspect]
     Active Substance: AMPHOTERICIN B
     Dosage: 1 MG/KG, QD
     Route: 065
  3. AMBISOME [Suspect]
     Active Substance: AMPHOTERICIN B
     Dosage: 10 MG/KG, QD
     Route: 065
  4. AMBISOME [Suspect]
     Active Substance: AMPHOTERICIN B
     Indication: Aspergillus infection
     Dosage: 10 MG/KG EVERY 2ND DAY (INCREASED TO 10 MG/KG)
     Route: 065
     Dates: start: 201504, end: 201505
  5. AMBISOME [Suspect]
     Active Substance: AMPHOTERICIN B
     Dosage: 2.5 MG/KG, QD(EVERY 3RD DAY)
     Route: 065
     Dates: start: 201505
  6. AMBISOME [Suspect]
     Active Substance: AMPHOTERICIN B
     Indication: Mucormycosis
     Dosage: 5 MG/KG, QD
     Route: 065
     Dates: start: 201503, end: 201504
  7. AMBISOME [Suspect]
     Active Substance: AMPHOTERICIN B
     Dosage: 5 MG/KG, DAILY (INCREASE TO 5 MG/KG/DAY EVERY 3RD DAY)
     Route: 065
     Dates: start: 201604
  8. AMBISOME [Suspect]
     Active Substance: AMPHOTERICIN B
     Indication: Pulmonary mucormycosis
     Dosage: DOSAGES WERE REDUCED
     Route: 065
  9. CYCLOPHOSPHAMIDE [Suspect]
     Active Substance: CYCLOPHOSPHAMIDE
     Dosage: UNK UNK, BLOCK IB
     Route: 065
  10. CYCLOPHOSPHAMIDE [Suspect]
     Active Substance: CYCLOPHOSPHAMIDE
     Indication: B precursor type acute leukaemia
     Dosage: UNK BLOCK IB
     Route: 065
  11. CYTARABINE [Suspect]
     Active Substance: CYTARABINE
     Indication: B precursor type acute leukaemia
     Dosage: UNK
     Route: 065
  12. CYTARABINE [Suspect]
     Active Substance: CYTARABINE
     Dosage: UNKUNK, BLOCK IB
     Route: 065
  13. DEXAMETHASONE [Suspect]
     Active Substance: DEXAMETHASONE
     Indication: B precursor type acute leukaemia
     Dosage: 10 MG/M2, QD
     Route: 065
     Dates: start: 201501, end: 201502
  14. DEXAMETHASONE [Suspect]
     Active Substance: DEXAMETHASONE
     Indication: Acute lymphocytic leukaemia
     Dosage: UNK BLOCK II A
     Route: 065
     Dates: start: 201501, end: 201502
  15. DOXORUBICIN [Suspect]
     Active Substance: DOXORUBICIN
     Indication: B precursor type acute leukaemia
     Dosage: UNK
     Route: 065
  16. DOXORUBICIN [Suspect]
     Active Substance: DOXORUBICIN
     Indication: Acute lymphocytic leukaemia
     Dosage: UNK UNK, BLOCK IIA
     Route: 065
     Dates: start: 201501, end: 201501
  17. DAUNORUBICIN [Suspect]
     Active Substance: DAUNORUBICIN
     Indication: B precursor type acute leukaemia
     Dosage: 4 DOSES BLOCK IA
     Route: 065
     Dates: start: 201408, end: 2014
  18. DAUNORUBICIN [Suspect]
     Active Substance: DAUNORUBICIN
     Indication: Acute lymphocytic leukaemia
     Dosage: UNK
     Route: 065
  19. DAUNORUBICIN [Suspect]
     Active Substance: DAUNORUBICIN
     Dosage: UNK  UNK, BLOCK IIA
     Route: 065
     Dates: start: 201501, end: 201501
  20. METHOTREXATE [Suspect]
     Active Substance: METHOTREXATE
     Dosage: UNK MAINTENANCE: 0.5-0.7 MG/KG ONCE WEEKLY
     Route: 037
     Dates: start: 201408
  21. METHOTREXATE [Suspect]
     Active Substance: METHOTREXATE
     Dosage: UNK UNK, BLOCK IB
     Route: 037
  22. METHOTREXATE [Suspect]
     Active Substance: METHOTREXATE
     Indication: B precursor type acute leukaemia
     Dosage: UNK UNK, BLOCK IIA
     Route: 037
     Dates: start: 201502
  23. METHOTREXATE SODIUM [Suspect]
     Active Substance: METHOTREXATE SODIUM
     Dosage: 0.5-0.7 MG/KG, QW
     Route: 065
     Dates: start: 201504, end: 201505
  24. METHOTREXATE SODIUM [Suspect]
     Active Substance: METHOTREXATE SODIUM
     Indication: Acute lymphocytic leukaemia
     Dosage: UNK, BLOCK IA
     Route: 037
     Dates: start: 201408
  25. METHOTREXATE SODIUM [Suspect]
     Active Substance: METHOTREXATE SODIUM
     Dosage: UNK, BLOCK IB
     Route: 037
  26. MERCAPTOPURINE [Suspect]
     Active Substance: MERCAPTOPURINE
     Indication: B precursor type acute leukaemia
     Dosage: 1.5 MG/KG 1.5 MG/KG DAILY; MAINTENANCE
     Route: 065
     Dates: start: 2014, end: 2014
  27. MERCAPTOPURINE [Suspect]
     Active Substance: MERCAPTOPURINE
     Indication: Acute lymphocytic leukaemia
     Dosage: 1.5 MG/KG, DAILY
     Route: 065
     Dates: start: 201504, end: 201505
  28. MERCAPTOPURINE [Suspect]
     Active Substance: MERCAPTOPURINE
     Dosage: UNK
     Route: 065
  29. ONCASPAR [Suspect]
     Active Substance: PEGASPARGASE
     Indication: B precursor type acute leukaemia
     Dosage: 2500 U/M2 DAY 12 AND DAY 8 OF BLOCK IIA
     Route: 042
     Dates: start: 201501, end: 201501
  30. POSACONAZOLE [Suspect]
     Active Substance: POSACONAZOLE
     Indication: Antifungal treatment
     Dosage: 15 MG/KG, QD
     Route: 048
     Dates: start: 201504, end: 201505
  31. POSACONAZOLE [Suspect]
     Active Substance: POSACONAZOLE
     Indication: Pulmonary mucormycosis
     Dosage: 20 MG/KG, QD
     Route: 048
     Dates: start: 201604, end: 201605
  32. PREDNISONE [Suspect]
     Active Substance: PREDNISONE
     Indication: B precursor type acute leukaemia
     Dosage: UNK
     Route: 065
     Dates: start: 201408, end: 2014
  33. PREDNISONE [Suspect]
     Active Substance: PREDNISONE
     Indication: Acute lymphocytic leukaemia
     Dosage: UNK BLOCK IA
     Route: 065
     Dates: start: 201408
  34. THIOGUANINE [Suspect]
     Active Substance: THIOGUANINE
     Indication: B precursor type acute leukaemia
     Dosage: UNK
     Route: 065
  35. VORICONAZOLE [Suspect]
     Active Substance: VORICONAZOLE
     Indication: Antifungal treatment
     Dosage: 15 MG/KG, QD
     Route: 065
     Dates: start: 201503, end: 201504
  36. VORICONAZOLE [Suspect]
     Active Substance: VORICONAZOLE
     Indication: Mucormycosis
     Dosage: 8 MG/KG, QD
     Route: 065
     Dates: start: 201503, end: 201504
  37. VORICONAZOLE [Suspect]
     Active Substance: VORICONAZOLE
     Indication: Aspergillus infection
  38. VINCRISTINE [Suspect]
     Active Substance: VINCRISTINE
     Indication: B precursor type acute leukaemia
     Dosage: UNK
     Route: 065
  39. VINCRISTINE [Suspect]
     Active Substance: VINCRISTINE
     Indication: Acute lymphocytic leukaemia
     Dosage: UNK BLOCK IA
     Route: 065
     Dates: start: 201408, end: 201408
  40. VINCRISTINE [Suspect]
     Active Substance: VINCRISTINE
     Dosage: UNK BLOCK IIA
     Route: 065
     Dates: start: 201501, end: 201501
  41. AMPHOTERICIN B [Concomitant]
     Active Substance: AMPHOTERICIN B
     Indication: Gastric infection
     Dosage: UNK
     Route: 065
     Dates: start: 201408, end: 201612
  42. CASPOFUNGIN [Concomitant]
     Active Substance: CASPOFUNGIN
     Indication: Antifungal treatment
     Dosage: 1 MG/KG, DAILY
     Route: 065
     Dates: start: 201502, end: 201503
  43. CASPOFUNGIN [Concomitant]
     Active Substance: CASPOFUNGIN
     Indication: Aspergillus infection
     Dosage: UNK
     Route: 065
  44. Ceftazidim mip [Concomitant]
     Indication: Lung infiltration
     Dosage: UNK
     Route: 065
  45. Linezolid hcs [Concomitant]
     Indication: Lung infiltration
     Dosage: UNK
     Route: 065
  46. POSACONAZOLE [Concomitant]
     Active Substance: POSACONAZOLE
     Indication: Pulmonary mucormycosis
     Dosage: 15 MG/KG, QD
     Route: 065
  47. VORICONAZOLE [Concomitant]
     Active Substance: VORICONAZOLE
     Indication: Pulmonary mucormycosis
     Dosage: 8 MG/KG, QD
     Route: 065

REACTIONS (7)
  - Drug ineffective [Recovered/Resolved]
  - Pulmonary mucormycosis [Recovered/Resolved]
  - Aspergillus infection [Recovering/Resolving]
  - Hypokalaemia [Unknown]
  - Mucormycosis [Unknown]
  - Intentional product use issue [Unknown]
  - Off label use [Unknown]

NARRATIVE: CASE EVENT DATE: 20150401
